FAERS Safety Report 21654961 (Version 1)
Quarter: 2022Q4

REPORT INFORMATION
  Report Type: Spontaneous
  Country: US (occurrence: US)
  Receive Date: 20221129
  Receipt Date: 20221129
  Transmission Date: 20230112
  Serious: Yes (Hospitalization, Other)
  Sender: FDA-Public Use
  Company Number: US-LA JOLLA PHARMACEUTICAL COMPANY-0000369

PATIENT

DRUGS (9)
  1. GIAPREZA [Suspect]
     Active Substance: ANGIOTENSIN II
     Indication: Shock
     Dosage: 60 NG/KG/MIN
  2. EPINEPHRINE [Concomitant]
     Active Substance: EPINEPHRINE
     Dosage: 0.03 MG/KG/MIN
  3. NOREPINEPHRINE [Concomitant]
     Active Substance: NOREPINEPHRINE
     Dosage: 0.11 MG/KG/MIN
  4. VASOPRESSIN [Concomitant]
     Active Substance: VASOPRESSIN
     Dosage: 0.04 UNITS/MIN
  5. MILRINONE [Concomitant]
     Active Substance: MILRINONE
  6. EPOPROSTENOL [Concomitant]
     Active Substance: EPOPROSTENOL
  7. METHYLENE BLUE [Concomitant]
     Active Substance: METHYLENE BLUE
     Dosage: 1.5 MILLIGRAM/KILOGRAM
  8. HYDROXOCOBALAMIN [Concomitant]
     Active Substance: HYDROXOCOBALAMIN
     Dosage: 5 GRAM
  9. HEPARIN [Concomitant]
     Active Substance: HEPARIN SODIUM
     Dosage: 450 UNITS/H

REACTIONS (1)
  - Thrombocytopenia [Unknown]
